FAERS Safety Report 21528929 (Version 1)
Quarter: 2022Q4

REPORT INFORMATION
  Report Type: Report from Study
  Country: DE (occurrence: DE)
  Receive Date: 20221031
  Receipt Date: 20221031
  Transmission Date: 20230112
  Serious: Yes (Death, Life-Threatening, Hospitalization)
  Sender: FDA-Public Use
  Company Number: DE-009507513-2209DEU000407

PATIENT
  Sex: Male
  Weight: 67.7 kg

DRUGS (8)
  1. PEMETREXED [Suspect]
     Active Substance: PEMETREXED
     Indication: Non-small cell lung cancer
     Dosage: 740 MILLIGRAM
     Route: 065
     Dates: start: 20220810, end: 20220810
  2. CARBOPLATIN [Suspect]
     Active Substance: CARBOPLATIN
     Indication: Non-small cell lung cancer
     Dosage: 344 MILLIGRAM
     Route: 065
     Dates: start: 20220810, end: 20220810
  3. PEMBROLIZUMAB [Suspect]
     Active Substance: PEMBROLIZUMAB
     Indication: Non-small cell lung cancer
     Dosage: 200 MILLIGRAM
     Route: 065
     Dates: start: 20220810, end: 20220810
  4. DEXAMETHASONE [Concomitant]
     Active Substance: DEXAMETHASONE
     Dosage: 4 MILLIGRAM, BID, P.O./ I.V.
     Route: 065
     Dates: start: 20220809, end: 20220811
  5. FOLIC ACID [Concomitant]
     Active Substance: FOLIC ACID
     Dosage: 400 MICROGRAM
     Route: 048
     Dates: start: 20220802, end: 20220817
  6. VITAMIN B12 [Concomitant]
     Active Substance: CYANOCOBALAMIN
     Dosage: 1000 MICROGRAM, EVERY 9 WEEKS
     Route: 030
     Dates: start: 20220802, end: 20220802
  7. NEULASTA [Concomitant]
     Active Substance: PEGFILGRASTIM
     Dosage: 6 MILLIGRAM, 1 TOTAL, ONCE
     Route: 058
     Dates: start: 20220811, end: 20220811
  8. ONDANSETRON [Concomitant]
     Active Substance: ONDANSETRON
     Dosage: 8 MILLIGRAM, PER CYCLE
     Route: 042
     Dates: start: 20220810, end: 20220810

REACTIONS (4)
  - Death [Fatal]
  - Neutropenia [Fatal]
  - Pneumonitis [Fatal]
  - Sepsis [Fatal]

NARRATIVE: CASE EVENT DATE: 20220816
